FAERS Safety Report 6442288-1 (Version None)
Quarter: 2009Q4

REPORT INFORMATION
  Report Type: 
  Country: None (occurrence: None)
  Receive Date: 20091112
  Receipt Date: 20091027
  Transmission Date: 20100525
  Serious: No
  Sender: FDA-Public Use
  Company Number: B0602023A

PATIENT
  Age: 36 Year
  Sex: Female

DRUGS (6)
  1. VENTOLIN [Suspect]
     Indication: ASTHMA
  2. HYDROCORTISONE [Suspect]
  3. BECONASE [Suspect]
     Indication: ASTHMA
     Dosage: INHALED
     Route: 055
  4. MAGNESIUM SALT (FORMULATION UNKNOWN) (MAGNESIUM SALT) [Suspect]
     Dosage: INTRAVENOUS
     Route: 042
  5. ANTIBIOTICS (FORMULATION UNKNOWN) (ANTIBIOTICS) [Suspect]
  6. AMINOPHYLLINE [Suspect]
     Dosage: INTRAVENOUS
     Route: 042

REACTIONS (5)
  - CAESAREAN SECTION [None]
  - DRUG EXPOSURE DURING PREGNANCY [None]
  - DYSPNOEA [None]
  - OXYGEN SATURATION DECREASED [None]
  - RESPIRATORY RATE INCREASED [None]
